FAERS Safety Report 16250659 (Version 1)
Quarter: 2019Q2

REPORT INFORMATION
  Report Type: Spontaneous
  Country: US (occurrence: US)
  Receive Date: 20190426
  Receipt Date: 20190426
  Transmission Date: 20190711
  Serious: Yes (Hospitalization)
  Sender: FDA-Public Use
  Company Number: None

PATIENT
  Sex: Female

DRUGS (17)
  1. FASLODEX [Concomitant]
     Active Substance: FULVESTRANT
  2. MONTELUKAST [Concomitant]
     Active Substance: MONTELUKAST SODIUM
  3. NASONEX [Concomitant]
     Active Substance: MOMETASONE FUROATE
  4. DICLOFENAC [Concomitant]
     Active Substance: DICLOFENAC
  5. IBRANCE [Suspect]
     Active Substance: PALBOCICLIB
     Indication: BREAST CANCER
     Route: 048
  6. PROVENTIL [Concomitant]
     Active Substance: ALBUTEROL
  7. ALPRAZOLAM. [Concomitant]
     Active Substance: ALPRAZOLAM
  8. LUTEIN [Concomitant]
     Active Substance: LUTEIN
  9. RALOXIFENE. [Concomitant]
     Active Substance: RALOXIFENE
  10. METFORMIN [Concomitant]
     Active Substance: METFORMIN HYDROCHLORIDE
  11. OCUVITE [Concomitant]
     Active Substance: VITAMINS
  12. SUMATRIPTAN. [Concomitant]
     Active Substance: SUMATRIPTAN
  13. XGEVA [Concomitant]
     Active Substance: DENOSUMAB
  14. MULTI VITAMIN [Concomitant]
     Active Substance: VITAMINS
  15. CALCIUM [Concomitant]
     Active Substance: CALCIUM
  16. OXYCODONE [Concomitant]
     Active Substance: OXYCODONE
  17. SINGULAIR [Concomitant]
     Active Substance: MONTELUKAST SODIUM

REACTIONS (1)
  - Hospitalisation [None]
